FAERS Safety Report 15437944 (Version 1)
Quarter: 2018Q3

REPORT INFORMATION
  Report Type: Spontaneous
  Country: FR (occurrence: FR)
  Receive Date: 20180928
  Receipt Date: 20180928
  Transmission Date: 20181010
  Serious: Yes (Other)
  Sender: FDA-Public Use
  Company Number: FR-PROVELL PHARMACEUTICALS-2055445

PATIENT
  Age: 70 Year
  Sex: Female

DRUGS (1)
  1. EUTHYROX [Suspect]
     Active Substance: LEVOTHYROXINE SODIUM
     Indication: THYROID DISORDER
     Dates: end: 2017

REACTIONS (3)
  - Reaction to excipient [None]
  - Steatohepatitis [None]
  - Hepatomegaly [None]

NARRATIVE: CASE EVENT DATE: 2005
